FAERS Safety Report 7336414-X (Version None)
Quarter: 2011Q1

REPORT INFORMATION
  Report Type: 
  Country: None (occurrence: None)
  Receive Date: 20110307
  Receipt Date: 20110224
  Transmission Date: 20110831
  Serious: Yes (Other)
  Sender: FDA-Public Use
  Company Number: NL-ASTRAZENECA-2011SE10540

PATIENT
  Age: 26226 Day
  Sex: Male
  Weight: 85 kg

DRUGS (2)
  1. METOCLOPRAMIDE HCL PCH [Suspect]
     Indication: NAUSEA
     Route: 048
     Dates: start: 20090616, end: 20090617
  2. SELOKEEN ZOC [Suspect]
     Indication: HYPERTENSION
     Route: 048
     Dates: start: 20100118, end: 20100119

REACTIONS (1)
  - MONOPLEGIA [None]
